FAERS Safety Report 10407925 (Version 3)
Quarter: 2014Q3

REPORT INFORMATION
  Report Type: Spontaneous
  Country: JP (occurrence: JP)
  Receive Date: 20140825
  Receipt Date: 20140924
  Transmission Date: 20150326
  Serious: Yes (Hospitalization, Other)
  Sender: FDA-Public Use
  Company Number: JP-009507513-1408JPN012399

PATIENT
  Age: 70 Year
  Sex: Female
  Weight: 61 kg

DRUGS (21)
  1. PEGINTRON [Suspect]
     Active Substance: PEGINTERFERON ALFA-2B
     Dosage: 80 MICROGRAM, QW
     Route: 058
     Dates: start: 20140710, end: 20140710
  2. PEGINTRON [Suspect]
     Active Substance: PEGINTERFERON ALFA-2B
     Dosage: 60 MICROGRAM, QW
     Route: 058
     Dates: start: 20140806, end: 20140806
  3. TAURINE [Concomitant]
     Active Substance: TAURINE
     Dosage: DAILY DOSAGE UNKNOWN
     Route: 048
  4. KRACIE SHAKUYAKUKANZOTO EXTRACT FINE GRANULES [Concomitant]
     Dosage: DAILY DOSAGE UNKNOWN
     Route: 048
  5. KARY UNI [Concomitant]
     Active Substance: PIRENOXINE
     Dosage: DAILY DOSAGE UNKNOWN
     Route: 047
  6. REBETOL [Suspect]
     Active Substance: RIBAVIRIN
     Dosage: 200 MG/DAY DIVIDED DOSE FREQUENCY UNKNOWN
     Dates: start: 20140812, end: 20140812
  7. NIFLAN [Concomitant]
     Dosage: DAILY DOSAGE UNKNOWN
     Route: 047
  8. REBETOL [Suspect]
     Active Substance: RIBAVIRIN
     Dosage: 600 MG/DAY DIVIDED DOSE FREQUENCY UNKNOWN
     Dates: start: 20140806, end: 20140811
  9. PEGINTRON [Suspect]
     Active Substance: PEGINTERFERON ALFA-2B
     Dosage: 70 MICROGRAM, QW
     Route: 058
     Dates: start: 20140716, end: 20140731
  10. REBETOL [Suspect]
     Active Substance: RIBAVIRIN
     Indication: HEPATITIS C
     Dosage: 400 MG, BID
     Route: 048
     Dates: start: 20140618, end: 20140805
  11. LASIX [Concomitant]
     Active Substance: FUROSEMIDE
     Dosage: DAILY DOSAGE UNKNOWN
     Route: 048
  12. LANZOPRAZOLE OD [Concomitant]
     Dosage: DAILY DOSAGE UNKNOWN
     Route: 048
  13. LOXOPROFEN [Concomitant]
     Active Substance: LOXOPROFEN
     Dosage: DAILY DOSAGE UNKNOWN
     Route: 048
  14. REBAMIPIDE [Concomitant]
     Active Substance: REBAMIPIDE
     Dosage: DAILY DOSAGE UNKNOWN
     Route: 048
  15. SPIROPENT [Concomitant]
     Active Substance: CLENBUTEROL HYDROCHLORIDE
     Dosage: DAILY DOSAGE UNKNOWN
     Route: 048
  16. LIVEREVAN [Concomitant]
     Dosage: DAILY DOSAGE UNKNOWN
     Route: 048
  17. L CARTIN [Concomitant]
     Dosage: DAILY DOSAGE UNKNOWN
     Route: 048
  18. SOVRIAD [Suspect]
     Active Substance: SIMEPREVIR
     Indication: HEPATITIS C
     Dosage: 100 MG, QD
     Route: 048
     Dates: start: 20140618, end: 20140814
  19. PEGINTRON [Suspect]
     Active Substance: PEGINTERFERON ALFA-2B
     Indication: HEPATITIS C
     Dosage: 70 MICROGRAM, QW
     Route: 058
     Dates: start: 20140618, end: 20140702
  20. ALDACTONE [Concomitant]
     Active Substance: SPIRONOLACTONE
     Dosage: DAILY DOSAGE UNKNOWN
     Route: 048
  21. SINGULAIR [Concomitant]
     Active Substance: MONTELUKAST SODIUM
     Dosage: DAILY DOSAGE UNKNOWN
     Route: 048

REACTIONS (3)
  - Wrong technique in drug usage process [Unknown]
  - Wrong technique in drug usage process [Unknown]
  - Escherichia sepsis [Recovered/Resolved]

NARRATIVE: CASE EVENT DATE: 20140730
